FAERS Safety Report 8137308-2 (Version None)
Quarter: 2012Q1

REPORT INFORMATION
  Report Type: 
  Country: None (occurrence: None)
  Receive Date: 20120215
  Receipt Date: 20120205
  Transmission Date: 20120608
  Serious: Yes (Other)
  Sender: FDA-Public Use
  Company Number: US-SHIRE-ALL1-2012-00655

PATIENT
  Sex: Male

DRUGS (1)
  1. PENTASA [Suspect]
     Indication: COLITIS ULCERATIVE
     Dosage: 500 MG, UNKNOWN
     Route: 048
     Dates: start: 20101001

REACTIONS (11)
  - SUICIDAL IDEATION [None]
  - NIGHT SWEATS [None]
  - AFFECT LABILITY [None]
  - RASH [None]
  - CHAPPED LIPS [None]
  - HERPES VIRUS INFECTION [None]
  - PYREXIA [None]
  - PENILE PAIN [None]
  - OROPHARYNGEAL PAIN [None]
  - DIARRHOEA [None]
  - ACNE [None]
